FAERS Safety Report 9162188 (Version 1)
Quarter: 2013Q1

REPORT INFORMATION
  Report Type: Spontaneous
  Country: FR (occurrence: None)
  Receive Date: 20130220
  Receipt Date: 20130220
  Transmission Date: 20140127
  Serious: Yes (Hospitalization)
  Sender: FDA-Public Use
  Company Number: DSM-2013-00215

PATIENT
  Age: 81 Year
  Sex: Male

DRUGS (9)
  1. COOLMETEC [Suspect]
     Route: 048
  2. MABTHERA [Suspect]
     Dates: start: 201101, end: 20110520
  3. CELLTOP [Suspect]
     Route: 048
     Dates: start: 201101, end: 20110520
  4. ENDOXAN [Suspect]
     Route: 048
     Dates: start: 201101, end: 20110520
  5. SOLUPRED [Suspect]
     Dates: start: 201101, end: 20110520
  6. MOPRAL [Suspect]
     Route: 048
     Dates: start: 201101, end: 20110520
  7. PROCORALAN [Suspect]
     Route: 048
     Dates: end: 20110611
  8. PREVISCAN [Concomitant]
  9. LODALES (SIMVASTATIN) [Concomitant]

REACTIONS (5)
  - Pulmonary fibrosis [None]
  - Interstitial lung disease [None]
  - Oedema peripheral [None]
  - Congestive cardiomyopathy [None]
  - Ventricular dysfunction [None]
